FAERS Safety Report 7553939-2 (Version None)
Quarter: 2011Q2

REPORT INFORMATION
  Report Type: 
  Country: None (occurrence: None)
  Receive Date: 20110614
  Receipt Date: 20110614
  Transmission Date: 20111010
  Serious: Yes (Life-Threatening)
  Sender: FDA-Public Use
  Company Number: None

PATIENT
  Age: 73 Year
  Sex: Female
  Weight: 68.4024 kg

DRUGS (1)
  1. PROLIA [Suspect]
     Indication: OSTEOPENIA
     Dosage: EVERY 6 MONTHS
     Dates: start: 20101127

REACTIONS (5)
  - WEIGHT INCREASED [None]
  - OEDEMA PERIPHERAL [None]
  - RASH [None]
  - BACK PAIN [None]
  - SENSATION OF HEAVINESS [None]
